FAERS Safety Report 17972206 (Version 2)
Quarter: 2021Q2

REPORT INFORMATION
  Report Type: Spontaneous
  Country: US (occurrence: US)
  Receive Date: 20200702
  Receipt Date: 20210629
  Transmission Date: 20210717
  Serious: Yes (Other)
  Sender: FDA-Public Use
  Company Number: US-TEVA-2020-US-1794328

PATIENT
  Sex: Male

DRUGS (12)
  1. OXYCODONE [Suspect]
     Active Substance: OXYCODONE
     Indication: DRUG DEPENDENCE
     Route: 065
  2. ZOLPIDEM [Suspect]
     Active Substance: ZOLPIDEM TARTRATE
     Route: 065
  3. METHYLPREDNISOLONE. [Suspect]
     Active Substance: METHYLPREDNISOLONE
     Route: 065
  4. VALIUM [Suspect]
     Active Substance: DIAZEPAM
     Route: 065
  5. METHADONE [Suspect]
     Active Substance: METHADONE HYDROCHLORIDE
     Indication: DRUG DEPENDENCE
     Route: 065
  6. DOSEPK?CYCLOBENZAPRINE [Suspect]
     Active Substance: CYCLOBENZAPRINE
     Dosage: DOSEPK?CYCLOBENZAPRINE
     Route: 065
  7. LYRICA [Suspect]
     Active Substance: PREGABALIN
     Route: 065
  8. MELOXICAM. [Suspect]
     Active Substance: MELOXICAM
     Route: 065
  9. KLONOPIN [Suspect]
     Active Substance: CLONAZEPAM
     Route: 065
  10. DOSEPK?CYCLOBENZAPRINE [Suspect]
     Active Substance: CYCLOBENZAPRINE
     Route: 065
  11. VICODIN [Suspect]
     Active Substance: ACETAMINOPHEN\HYDROCODONE BITARTRATE
     Indication: DRUG DEPENDENCE
     Route: 065
  12. XANAX [Suspect]
     Active Substance: ALPRAZOLAM
     Indication: DRUG DEPENDENCE
     Route: 065

REACTIONS (18)
  - Central nervous system lesion [Unknown]
  - Fall [Unknown]
  - Loss of personal independence in daily activities [Unknown]
  - Post-traumatic stress disorder [Unknown]
  - Asthenia [Unknown]
  - Anxiety [Unknown]
  - Memory impairment [Unknown]
  - Pain [Unknown]
  - Drug dependence [Unknown]
  - Mental impairment [Unknown]
  - Suicidal ideation [Unknown]
  - Hypertension [Unknown]
  - Dizziness [Unknown]
  - Depression [Unknown]
  - Loss of employment [Unknown]
  - Osteoporosis [Unknown]
  - Feeling abnormal [Unknown]
  - Gait disturbance [Unknown]
